FAERS Safety Report 18244541 (Version 27)
Quarter: 2021Q3

REPORT INFORMATION
  Report Type: Other
  Country: DE (occurrence: DE)
  Receive Date: 20200909
  Receipt Date: 20210727
  Transmission Date: 20211014
  Serious: Yes (Other)
  Sender: FDA-Public Use
  Company Number: DE-ROCHE-2669047

PATIENT
  Age: 52 Year
  Sex: Female
  Weight: 62 kg

DRUGS (14)
  1. PANTOPRAZOL [Suspect]
     Active Substance: PANTOPRAZOLE SODIUM
     Route: 065
  2. CANNABIS SATIVA FLOWER [Concomitant]
     Dosage: SEVERAL TIMES PER DAY AND IN THE NIGHT
  3. OCREVUS [Suspect]
     Active Substance: OCRELIZUMAB
     Indication: RELAPSING-REMITTING MULTIPLE SCLEROSIS
     Route: 042
     Dates: start: 20180523
  4. OCREVUS [Suspect]
     Active Substance: OCRELIZUMAB
     Route: 042
     Dates: start: 20201028
  5. CORTISONE [Suspect]
     Active Substance: CORTISONE
     Indication: PRODUCT USED FOR UNKNOWN INDICATION
     Dosage: ALTERNATIVE TO VOLON A
     Route: 065
     Dates: start: 20200810, end: 20200813
  6. IBUPROFEN. [Concomitant]
     Active Substance: IBUPROFEN
  7. DOMPERIDONE [Concomitant]
     Active Substance: DOMPERIDONE
  8. VOLON A [Concomitant]
     Dates: start: 20200409
  9. SALBUTAMOL [Concomitant]
     Active Substance: ALBUTEROL
  10. PANTOPRAZOL [Suspect]
     Active Substance: PANTOPRAZOLE SODIUM
     Indication: PRODUCT USED FOR UNKNOWN INDICATION
     Route: 065
  11. VOLON A [Concomitant]
     Dosage: INTO SPINAL FLUID
  12. NOVALGIN (METAMIZOLE SODIUM) [Concomitant]
     Active Substance: METAMIZOLE SODIUM
  13. COMIRNATY [Suspect]
     Active Substance: TOZINAMERAN
     Indication: COVID-19 IMMUNISATION
     Dosage: SINGLE DOSE
     Route: 065
     Dates: start: 20210415, end: 20210415
  14. DEKRISTOL [Concomitant]
     Active Substance: CHOLECALCIFEROL

REACTIONS (34)
  - Gastritis erosive [Recovered/Resolved]
  - Body fat disorder [Not Recovered/Not Resolved]
  - Urinary tract infection bacterial [Recovered/Resolved]
  - B-lymphocyte count decreased [Not Recovered/Not Resolved]
  - Cushing^s syndrome [Not Recovered/Not Resolved]
  - Bone density increased [Not Recovered/Not Resolved]
  - Dry skin [Not Recovered/Not Resolved]
  - Fluid retention [Not Recovered/Not Resolved]
  - Weight increased [Not Recovered/Not Resolved]
  - Alopecia [Not Recovered/Not Resolved]
  - Pain in extremity [Recovered/Resolved]
  - Arthralgia [Recovered/Resolved]
  - Muscle spasticity [Recovered/Resolved]
  - Mobility decreased [Recovered/Resolved]
  - Irritability [Not Recovered/Not Resolved]
  - Blood cholesterol increased [Recovered/Resolved]
  - Bone pain [Recovered/Resolved]
  - Muscular weakness [Recovered/Resolved]
  - Insomnia [Recovered/Resolved]
  - Gait disturbance [Not Recovered/Not Resolved]
  - Diarrhoea [Recovered/Resolved]
  - Asthenia [Recovered/Resolved]
  - Initial insomnia [Recovered/Resolved]
  - Injection site warmth [Recovered/Resolved]
  - Cataract [Not Recovered/Not Resolved]
  - Dizziness [Recovered/Resolved]
  - Calcinosis [Recovered/Resolved]
  - Rash [Recovered/Resolved]
  - Alopecia [Recovered/Resolved]
  - Cystitis noninfective [Not Recovered/Not Resolved]
  - Paraesthesia [Recovered/Resolved]
  - Periorbital swelling [Not Recovered/Not Resolved]
  - Injection site erythema [Recovered/Resolved]
  - Endometrial thickening [Not Recovered/Not Resolved]

NARRATIVE: CASE EVENT DATE: 20180523
